FAERS Safety Report 8250123-4 (Version None)
Quarter: 2012Q2

REPORT INFORMATION
  Report Type: 
  Country: None (occurrence: None)
  Receive Date: 20120402
  Receipt Date: 20120328
  Transmission Date: 20120825
  Serious: Yes (Death, Hospitalization)
  Sender: FDA-Public Use
  Company Number: JP-ASTRAZENECA-2012SE19636

PATIENT
  Sex: Female

DRUGS (2)
  1. LOXONIN [Concomitant]
     Dosage: DOSE UNKNOWN
     Route: 048
  2. NEXIUM [Suspect]
     Indication: GASTROOESOPHAGEAL REFLUX DISEASE
     Route: 048
     Dates: end: 20120316

REACTIONS (4)
  - PYREXIA [None]
  - FACE OEDEMA [None]
  - PANCREATIC CARCINOMA [None]
  - DYSPNOEA [None]
